FAERS Safety Report 7349275-X (Version None)
Quarter: 2011Q1

REPORT INFORMATION
  Report Type: 
  Country: None (occurrence: None)
  Receive Date: 20110314
  Receipt Date: 20110302
  Transmission Date: 20110831
  Serious: Yes (Death)
  Sender: FDA-Public Use
  Company Number: US-SHIRE-SPV1-2011-00027

PATIENT
  Sex: Male
  Weight: 764.17 kg

DRUGS (2)
  1. TRANSPLANTATION MEDICATIONS [Suspect]
     Indication: LIVER TRANSPLANT
     Dosage: UNK, UNKNOWN
     Route: 065
  2. VELAGLUCERASE ALFA [Suspect]
     Indication: GAUCHER'S DISEASE
     Dosage: UNK ML, 1X/2WKS (3700-3600 UNITS)
     Route: 041
     Dates: start: 20100101, end: 20101027

REACTIONS (1)
  - PANCREATIC CARCINOMA [None]
